FAERS Safety Report 24087421 (Version 1)
Quarter: 2024Q3

REPORT INFORMATION
  Report Type: Spontaneous
  Country: CA (occurrence: CA)
  Receive Date: 20240714
  Receipt Date: 20240714
  Transmission Date: 20241017
  Serious: Yes (Death)
  Sender: BAXTER
  Company Number: CA-BAXTER-2024BAX021166

PATIENT

DRUGS (4)
  1. POTASSIUM CHLORIDE [Suspect]
     Active Substance: POTASSIUM CHLORIDE
     Dosage: UNSPECIFIED DOSE AND FREQUENCY (PRODUCT CODE: JB0827P)
     Route: 065
  2. POTASSIUM CHLORIDE [Suspect]
     Active Substance: POTASSIUM CHLORIDE
     Dosage: UNSPECIFIED DOSE AND FREQUENCY (PRODUCT CODE: JB0822P)
     Route: 065
  3. POTASSIUM CHLORIDE [Suspect]
     Active Substance: POTASSIUM CHLORIDE
     Dosage: UNSPECIFIED DOSE AND FREQUENCY (PRODUCT CODE: JB0826P)
     Route: 065
  4. METRONIDAZOLE [Suspect]
     Active Substance: METRONIDAZOLE
     Dosage: UNSPECIFIED DOSE AND FREQUENCY (PRODUCT CODE: JB3401P AND JB3415)
     Route: 065

REACTIONS (2)
  - Death [Fatal]
  - Medication error [Fatal]
